FAERS Safety Report 9387441 (Version 2)
Quarter: 2013Q3

REPORT INFORMATION
  Report Type: Spontaneous
  Country: US (occurrence: US)
  Receive Date: 20130708
  Receipt Date: 20130719
  Transmission Date: 20140515
  Serious: Yes (Other)
  Sender: FDA-Public Use
  Company Number: US-SANOFI-AVENTIS-2013SA067335

PATIENT
  Age: 78 Year
  Sex: Male
  Weight: 101 kg

DRUGS (17)
  1. LANTUS [Suspect]
     Indication: TYPE 2 DIABETES MELLITUS
     Route: 065
  2. LANTUS SOLOSTAR [Suspect]
     Indication: TYPE 2 DIABETES MELLITUS
     Dosage: DOSE:50 UNIT(S)
     Route: 058
  3. SOLOSTAR [Suspect]
     Indication: TYPE 2 DIABETES MELLITUS
  4. APIDRA SOLOSTAR [Suspect]
     Indication: TYPE 2 DIABETES MELLITUS
     Route: 065
  5. SOLOSTAR [Suspect]
     Indication: TYPE 2 DIABETES MELLITUS
  6. PANTOPRAZOLE [Concomitant]
     Indication: GASTROOESOPHAGEAL REFLUX DISEASE
  7. CARVEDILOL [Concomitant]
     Indication: CARDIAC DISORDER
  8. OMEGA 3 [Concomitant]
     Indication: BLOOD CHOLESTEROL
  9. WARFARIN [Concomitant]
  10. FENOFIBRATE [Concomitant]
  11. FLUVASTATIN [Concomitant]
  12. CYMBALTA [Concomitant]
  13. GABAPENTIN [Concomitant]
  14. OXYCODONE [Concomitant]
     Dosage: TWO DAY EVERY OTHER DAY.
  15. MULTIVITAMINS [Concomitant]
  16. DIPHENHYDRAMINE HYDROCHLORIDE [Concomitant]
     Indication: SLEEP DISORDER
  17. KLOR-CON [Concomitant]

REACTIONS (2)
  - Macular degeneration [Unknown]
  - Visual acuity reduced [Unknown]
